FAERS Safety Report 4725983-1 (Version None)
Quarter: 2005Q3

REPORT INFORMATION
  Report Type: 
  Country: None (occurrence: None)
  Receive Date: 20050727
  Receipt Date: 20050616
  Transmission Date: 20060218
  Serious: Yes (Other)
  Sender: FDA-Public Use
  Company Number: DE-GLAXOSMITHKLINE-D0046856A

PATIENT
  Age: 3 Month
  Sex: Female

DRUGS (1)
  1. VIANI [Suspect]
     Indication: ASTHMA

REACTIONS (4)
  - ARRHYTHMIA NEONATAL [None]
  - DRUG EXPOSURE VIA BREAST MILK [None]
  - SUPRAVENTRICULAR EXTRASYSTOLES [None]
  - VENTRICULAR EXTRASYSTOLES [None]
